FAERS Safety Report 24052144 (Version 24)
Quarter: 2025Q2

REPORT INFORMATION
  Report Type: Spontaneous
  Country: IN (occurrence: IN)
  Receive Date: 20240704
  Receipt Date: 20250606
  Transmission Date: 20250716
  Serious: Yes (Hospitalization, Other)
  Sender: PFIZER
  Company Number: IN-PFIZER INC-PV202400086490

PATIENT
  Age: 49 Year
  Sex: Female
  Weight: 68.4 kg

DRUGS (4)
  1. LORLATINIB [Suspect]
     Active Substance: LORLATINIB
     Indication: Neoplasm malignant
     Dosage: 100 MG, 1X/DAY
     Route: 048
     Dates: start: 20240621
  2. CYCLOPHOSPHAMIDE [Concomitant]
     Active Substance: CYCLOPHOSPHAMIDE
  3. GLYCOMET [METFORMIN HYDROCHLORIDE] [Concomitant]
  4. ROZAVEL [Concomitant]

REACTIONS (38)
  - Asthenia [Not Recovered/Not Resolved]
  - Decreased appetite [Recovered/Resolved]
  - Menstruation delayed [Not Recovered/Not Resolved]
  - Premature menopause [Not Recovered/Not Resolved]
  - Fatigue [Recovered/Resolved]
  - Gait disturbance [Recovered/Resolved]
  - Metastasis [Recovering/Resolving]
  - Cough [Recovered/Resolved]
  - Diabetes mellitus [Not Recovered/Not Resolved]
  - Diarrhoea [Not Recovered/Not Resolved]
  - Anxiety [Recovered/Resolved]
  - Blood cholesterol increased [Recovering/Resolving]
  - Decreased activity [Recovered/Resolved]
  - Lipids increased [Not Recovered/Not Resolved]
  - Aspartate aminotransferase increased [Not Recovered/Not Resolved]
  - Blood bilirubin increased [Not Recovered/Not Resolved]
  - Full blood count decreased [Recovered/Resolved]
  - Hypoaesthesia [Not Recovered/Not Resolved]
  - Pain in extremity [Recovered/Resolved]
  - Blood urea decreased [Not Recovered/Not Resolved]
  - Globulins decreased [Not Recovered/Not Resolved]
  - Albumin globulin ratio decreased [Not Recovered/Not Resolved]
  - Anger [Recovered/Resolved with Sequelae]
  - Musculoskeletal stiffness [Not Recovered/Not Resolved]
  - Dysarthria [Not Recovered/Not Resolved]
  - Carpal tunnel syndrome [Recovering/Resolving]
  - Pleural effusion [Recovering/Resolving]
  - Weight increased [Not Recovered/Not Resolved]
  - Arthralgia [Recovering/Resolving]
  - Lipids abnormal [Not Recovered/Not Resolved]
  - Hepatic enzyme abnormal [Not Recovered/Not Resolved]
  - Blood glucose increased [Not Recovered/Not Resolved]
  - Bone pain [Not Recovered/Not Resolved]
  - Glucose tolerance impaired [Not Recovered/Not Resolved]
  - Dyspepsia [Not Recovered/Not Resolved]
  - Dyspnoea [Recovered/Resolved]
  - Stress [Recovered/Resolved]
  - Arthritis [Not Recovered/Not Resolved]

NARRATIVE: CASE EVENT DATE: 20240101
